FAERS Safety Report 5777702-8 (Version None)
Quarter: 2008Q2

REPORT INFORMATION
  Report Type: 
  Country: None (occurrence: None)
  Receive Date: 20080618
  Receipt Date: 20080611
  Transmission Date: 20081010
  Serious: Yes (Hospitalization)
  Sender: FDA-Public Use
  Company Number: AU-BOEHRINGER INGELHEIM GMBH, GERMANY-2008-BP-09068AU

PATIENT
  Sex: Female
  Weight: 60 kg

DRUGS (6)
  1. MOBIC [Suspect]
     Indication: OSTEOARTHRITIS
     Route: 048
     Dates: start: 20071119, end: 20080115
  2. SPIRACTIN [Suspect]
     Indication: CARDIAC FAILURE CONGESTIVE
     Route: 048
     Dates: start: 20030916, end: 20080115
  3. TRITACE [Suspect]
     Indication: CARDIAC FAILURE CONGESTIVE
     Route: 048
     Dates: start: 20010419, end: 20080115
  4. ASPIRIN [Concomitant]
     Indication: COAGULOPATHY
     Route: 048
     Dates: start: 20040914
  5. MINAX [Concomitant]
     Indication: ARRHYTHMIA
     Route: 048
     Dates: start: 20000712
  6. VYTORIN [Concomitant]
     Indication: METABOLIC DISORDER
     Route: 048
     Dates: start: 20070830

REACTIONS (3)
  - BLOOD POTASSIUM INCREASED [None]
  - DRUG INTERACTION [None]
  - RENAL FAILURE [None]
